FAERS Safety Report 25451525 (Version 1)
Quarter: 2025Q2

REPORT INFORMATION
  Report Type: Spontaneous
  Country: US (occurrence: US)
  Receive Date: 20250618
  Receipt Date: 20250618
  Transmission Date: 20250716
  Serious: No
  Sender: ROCHE
  Company Number: US-ROCHE-10000312212

PATIENT
  Sex: Female
  Weight: 66.68 kg

DRUGS (1)
  1. EVRYSDI [Suspect]
     Active Substance: RISDIPLAM
     Indication: Muscle atrophy
     Route: 048

REACTIONS (2)
  - Product dispensing error [Unknown]
  - No adverse event [Unknown]
